FAERS Safety Report 24929838 (Version 1)
Quarter: 2025Q1

REPORT INFORMATION
  Report Type: Spontaneous
  Country: US (occurrence: US)
  Receive Date: 20250205
  Receipt Date: 20250205
  Transmission Date: 20250409
  Serious: No
  Sender: SANOFI AVENTIS
  Company Number: US-SA-2025SA033926

PATIENT
  Age: 60 Year
  Sex: Male

DRUGS (13)
  1. DUPIXENT [Suspect]
     Active Substance: DUPILUMAB
     Indication: HIV infection
     Dosage: 300 MG, QOW
     Route: 058
     Dates: start: 20250106
  2. ALBUTEROL SULFATE [Concomitant]
     Active Substance: ALBUTEROL SULFATE
  3. BACLOFEN [Concomitant]
     Active Substance: BACLOFEN
  4. BUPROPION HYDROCHLORIDE [Concomitant]
     Active Substance: BUPROPION HYDROCHLORIDE
  5. DOVATO [Concomitant]
     Active Substance: DOLUTEGRAVIR SODIUM\LAMIVUDINE
  6. DULOXETINE HYDROCHLORIDE [Concomitant]
     Active Substance: DULOXETINE HYDROCHLORIDE
  7. FLUTICASONE [Concomitant]
     Active Substance: FLUTICASONE
  8. LOSARTAN POTASSIUM [Concomitant]
     Active Substance: LOSARTAN POTASSIUM
  9. MUPIROCIN [Concomitant]
     Active Substance: MUPIROCIN
  10. NEBIVOLOL [Concomitant]
     Active Substance: NEBIVOLOL
  11. POTASSIUM CHLORIDE [Concomitant]
     Active Substance: POTASSIUM CHLORIDE
  12. ROSUVASTATIN [Concomitant]
     Active Substance: ROSUVASTATIN
  13. Triamcinolon [Concomitant]

REACTIONS (3)
  - Pain in extremity [Not Recovered/Not Resolved]
  - Throat irritation [Not Recovered/Not Resolved]
  - Product use in unapproved indication [Unknown]
